FAERS Safety Report 11130002 (Version 2)
Quarter: 2015Q2

REPORT INFORMATION
  Report Type: Spontaneous
  Country: JP (occurrence: JP)
  Receive Date: 20150521
  Receipt Date: 20150609
  Transmission Date: 20150821
  Serious: Yes (Death, Hospitalization)
  Sender: FDA-Public Use
  Company Number: JP-MYLANLABS-2015M1015978

PATIENT

DRUGS (2)
  1. PACLITAXEL. [Suspect]
     Active Substance: PACLITAXEL
     Indication: UTERINE CANCER
     Dosage: 4 CYCLE
     Route: 041
  2. CARBOPLATIN INJECTION 150 MG ^NK^ [Suspect]
     Active Substance: CARBOPLATIN
     Indication: UTERINE CANCER
     Dosage: 4 CYCLE
     Route: 041

REACTIONS (6)
  - Pneumonia aspiration [Fatal]
  - Septic shock [Unknown]
  - General physical health deterioration [Unknown]
  - Respiratory failure [Fatal]
  - Febrile neutropenia [Unknown]
  - Quadriplegia [Unknown]
